FAERS Safety Report 26187768 (Version 1)
Quarter: 2025Q4

REPORT INFORMATION
  Report Type: Report from Study
  Country: EU (occurrence: EU)
  Receive Date: 20251222
  Receipt Date: 20251222
  Transmission Date: 20260118
  Serious: Yes (Death)
  Sender: MYLAN
  Company Number: EU-GIMEMA-ALL3024-2025-011

PATIENT
  Age: 52 Year
  Sex: Male
  Weight: 73 kg

DRUGS (32)
  1. METHOTREXATE [Interacting]
     Active Substance: METHOTREXATE
     Indication: Prophylaxis
     Dosage: 12.5 MILLIGRAM, QD
     Dates: start: 20251103, end: 20251107
  2. METHOTREXATE [Interacting]
     Active Substance: METHOTREXATE
     Dosage: 12.5 MILLIGRAM, QD
     Route: 037
     Dates: start: 20251103, end: 20251107
  3. METHOTREXATE [Interacting]
     Active Substance: METHOTREXATE
     Dosage: 12.5 MILLIGRAM, QD
     Route: 037
     Dates: start: 20251103, end: 20251107
  4. METHOTREXATE [Interacting]
     Active Substance: METHOTREXATE
     Dosage: 12.5 MILLIGRAM, QD
     Dates: start: 20251103, end: 20251107
  5. DARATUMUMAB [Suspect]
     Active Substance: DARATUMUMAB
     Indication: Acute lymphocytic leukaemia
     Dosage: 1800 MILLIGRAM, QD
     Dates: start: 20251031, end: 20251106
  6. DARATUMUMAB [Suspect]
     Active Substance: DARATUMUMAB
     Dosage: 1800 MILLIGRAM, QD
     Route: 058
     Dates: start: 20251031, end: 20251106
  7. DARATUMUMAB [Suspect]
     Active Substance: DARATUMUMAB
     Dosage: 1800 MILLIGRAM, QD
     Route: 058
     Dates: start: 20251031, end: 20251106
  8. DARATUMUMAB [Suspect]
     Active Substance: DARATUMUMAB
     Dosage: 1800 MILLIGRAM, QD
     Dates: start: 20251031, end: 20251106
  9. PEGASPARGASE [Interacting]
     Active Substance: PEGASPARGASE
     Indication: Acute lymphocytic leukaemia
     Dosage: 2775 MILLIGRAM, QD (2775 MG)
     Dates: start: 20251108, end: 20251108
  10. PEGASPARGASE [Interacting]
     Active Substance: PEGASPARGASE
     Dosage: 2775 MILLIGRAM, QD (2775 MG)
     Route: 042
     Dates: start: 20251108, end: 20251108
  11. PEGASPARGASE [Interacting]
     Active Substance: PEGASPARGASE
     Dosage: 2775 MILLIGRAM, QD (2775 MG)
     Route: 042
     Dates: start: 20251108, end: 20251108
  12. PEGASPARGASE [Interacting]
     Active Substance: PEGASPARGASE
     Dosage: 2775 MILLIGRAM, QD (2775 MG)
     Dates: start: 20251108, end: 20251108
  13. IDARUBICIN [Interacting]
     Active Substance: IDARUBICIN
     Indication: Acute lymphocytic leukaemia
     Dosage: 22.2 MILLIGRAM, QD (22.2 MILLIGRAM)
     Dates: start: 20251030, end: 20251031
  14. IDARUBICIN [Interacting]
     Active Substance: IDARUBICIN
     Dosage: 22.2 MILLIGRAM, QD (22.2 MILLIGRAM)
     Route: 042
     Dates: start: 20251030, end: 20251031
  15. IDARUBICIN [Interacting]
     Active Substance: IDARUBICIN
     Dosage: 22.2 MILLIGRAM, QD (22.2 MILLIGRAM)
     Route: 042
     Dates: start: 20251030, end: 20251031
  16. IDARUBICIN [Interacting]
     Active Substance: IDARUBICIN
     Dosage: 22.2 MILLIGRAM, QD (22.2 MILLIGRAM)
     Dates: start: 20251030, end: 20251031
  17. VINCRISTINE [Interacting]
     Active Substance: VINCRISTINE
     Indication: Acute lymphocytic leukaemia
     Dosage: 2 MILLIGRAM, QD (2 MILLIGRAM)
     Dates: start: 20251030, end: 20251106
  18. VINCRISTINE [Interacting]
     Active Substance: VINCRISTINE
     Dosage: 2 MILLIGRAM, QD (2 MILLIGRAM)
     Route: 042
     Dates: start: 20251030, end: 20251106
  19. VINCRISTINE [Interacting]
     Active Substance: VINCRISTINE
     Dosage: 2 MILLIGRAM, QD (2 MILLIGRAM)
     Route: 042
     Dates: start: 20251030, end: 20251106
  20. VINCRISTINE [Interacting]
     Active Substance: VINCRISTINE
     Dosage: 2 MILLIGRAM, QD (2 MILLIGRAM)
     Dates: start: 20251030, end: 20251106
  21. DEXAMETHASONE [Interacting]
     Active Substance: DEXAMETHASONE
     Indication: Acute lymphocytic leukaemia
     Dosage: 18.5 MILLIGRAM, QOD
     Dates: start: 20251030, end: 20251106
  22. DEXAMETHASONE [Interacting]
     Active Substance: DEXAMETHASONE
     Dosage: 18.5 MILLIGRAM, QOD
     Route: 042
     Dates: start: 20251030, end: 20251106
  23. DEXAMETHASONE [Interacting]
     Active Substance: DEXAMETHASONE
     Dosage: 18.5 MILLIGRAM, QOD
     Route: 042
     Dates: start: 20251030, end: 20251106
  24. DEXAMETHASONE [Interacting]
     Active Substance: DEXAMETHASONE
     Dosage: 18.5 MILLIGRAM, QOD
     Dates: start: 20251030, end: 20251106
  25. DEXAMETHASONE [Interacting]
     Active Substance: DEXAMETHASONE
     Indication: Prophylaxis
     Dosage: 4 MILLIGRAM, QD
     Dates: start: 20251103, end: 20251107
  26. DEXAMETHASONE [Interacting]
     Active Substance: DEXAMETHASONE
     Dosage: 4 MILLIGRAM, QD
     Route: 037
     Dates: start: 20251103, end: 20251107
  27. DEXAMETHASONE [Interacting]
     Active Substance: DEXAMETHASONE
     Dosage: 4 MILLIGRAM, QD
     Route: 037
     Dates: start: 20251103, end: 20251107
  28. DEXAMETHASONE [Interacting]
     Active Substance: DEXAMETHASONE
     Dosage: 4 MILLIGRAM, QD
     Dates: start: 20251103, end: 20251107
  29. CYTARABINE [Interacting]
     Active Substance: CYTARABINE
     Indication: Prophylaxis
     Dosage: 50 MILLIGRAM, QD
     Dates: start: 20251103, end: 20251107
  30. CYTARABINE [Interacting]
     Active Substance: CYTARABINE
     Dosage: 50 MILLIGRAM, QD
     Route: 037
     Dates: start: 20251103, end: 20251107
  31. CYTARABINE [Interacting]
     Active Substance: CYTARABINE
     Dosage: 50 MILLIGRAM, QD
     Route: 037
     Dates: start: 20251103, end: 20251107
  32. CYTARABINE [Interacting]
     Active Substance: CYTARABINE
     Dosage: 50 MILLIGRAM, QD
     Dates: start: 20251103, end: 20251107

REACTIONS (1)
  - Acute respiratory failure [Fatal]

NARRATIVE: CASE EVENT DATE: 20251119
